FAERS Safety Report 8623615 (Version 2)
Quarter: 2012Q4

REPORT INFORMATION
  Report Type: 
  Country: JP (occurrence: JP)
  Receive Date: 20120620
  Receipt Date: 20121214
  Transmission Date: 20130627
  Serious: Yes (Other)
  Sender: FDA-Public Use
  Company Number: JP-SANOFI-AVENTIS-2012SA029061

PATIENT
  Age: 55 Year
  Sex: Male
  Weight: 69 kg

DRUGS (4)
  1. CALCIUM FOLINATE [Suspect]
     Indication: RECTAL CANCER
     Dosage: 10 courses
     Route: 065
     Dates: start: 200705
  2. OXALIPLATIN [Suspect]
     Indication: RECTAL CANCER
     Route: 041
     Dates: start: 200705
  3. FLUOROURACIL [Suspect]
     Indication: RECTAL CANCER
     Dosage: bolus, 10 courses
     Route: 065
     Dates: start: 200705
  4. FLUOROURACIL [Suspect]
     Indication: RECTAL CANCER
     Dosage: on day 1 and 2 as 46-hour continous infusion, 10 courses
     Route: 042

REACTIONS (3)
  - Bone marrow failure [Unknown]
  - Granulocyte count decreased [Unknown]
  - White blood cell count decreased [Unknown]
